FAERS Safety Report 4590464-5 (Version None)
Quarter: 2005Q1

REPORT INFORMATION
  Report Type: 
  Country: None (occurrence: None)
  Receive Date: 20050224
  Receipt Date: 20050204
  Transmission Date: 20050727
  Serious: Yes (Death)
  Sender: FDA-Public Use
  Company Number: AU-BRISTOL-MYERS SQUIBB COMPANY-12874301

PATIENT
  Sex: Male

DRUGS (4)
  1. ABILIFY [Suspect]
  2. MORPHINE [Suspect]
  3. CHLORPROMAZINE [Suspect]
  4. BENZODIAZEPINES [Suspect]

REACTIONS (1)
  - ACCIDENTAL OVERDOSE [None]
